FAERS Safety Report 24832166 (Version 9)
Quarter: 2025Q1

REPORT INFORMATION
  Report Type: Spontaneous
  Country: JP (occurrence: JP)
  Receive Date: 20250110
  Receipt Date: 20250206
  Transmission Date: 20250409
  Serious: Yes (Other)
  Sender: PFIZER
  Company Number: JP-PFIZER INC-PV202500002528

PATIENT
  Age: 65 Year
  Sex: Female

DRUGS (5)
  1. BRAFTOVI [Suspect]
     Active Substance: ENCORAFENIB
     Indication: Rectal cancer stage IV
     Route: 048
  2. MEKTOVI [Suspect]
     Active Substance: BINIMETINIB
     Indication: Rectal cancer stage IV
     Route: 048
  3. MEKTOVI [Suspect]
     Active Substance: BINIMETINIB
     Route: 048
  4. RAMUCIRUMAB [Suspect]
     Active Substance: RAMUCIRUMAB
     Indication: Rectal cancer stage IV
     Route: 065
  5. CETUXIMAB [Concomitant]
     Active Substance: CETUXIMAB
     Indication: Rectal cancer stage IV

REACTIONS (2)
  - Pyogenic granuloma [Recovered/Resolved]
  - Serous retinal detachment [Unknown]
